FAERS Safety Report 21349905 (Version 1)
Quarter: 2022Q3

REPORT INFORMATION
  Report Type: Spontaneous
  Country: PT (occurrence: PT)
  Receive Date: 20220919
  Receipt Date: 20220919
  Transmission Date: 20221027
  Serious: Yes (Other)
  Sender: FDA-Public Use
  Company Number: None

PATIENT
  Age: 41 Year
  Sex: Male

DRUGS (9)
  1. HYDROCORTISONE [Suspect]
     Active Substance: HYDROCORTISONE
     Indication: Nasal septal operation
     Route: 065
     Dates: start: 20171127
  2. TRAMADOL [Suspect]
     Active Substance: TRAMADOL
     Indication: Nasal septal operation
     Route: 065
     Dates: start: 20171127
  3. ROCURONIUM BROMIDE [Suspect]
     Active Substance: ROCURONIUM BROMIDE
     Indication: Nasal septal operation
     Route: 065
     Dates: start: 20171127
  4. PROPOFOL [Suspect]
     Active Substance: PROPOFOL
     Indication: Nasal septal operation
     Route: 065
     Dates: start: 20171127
  5. ACETAMINOPHEN [Suspect]
     Active Substance: ACETAMINOPHEN
     Indication: Nasal septal operation
     Route: 065
     Dates: start: 20171127
  6. PROPOXYPHENE [Suspect]
     Active Substance: PROPOXYPHENE
     Indication: Nasal septal operation
     Route: 065
     Dates: start: 20171127
  7. FENTANYL [Suspect]
     Active Substance: FENTANYL
     Indication: Nasal septal operation
     Route: 065
     Dates: start: 20171127
  8. METOCLOPRAMIDE HYDROCHLORIDE [Suspect]
     Active Substance: METOCLOPRAMIDE HYDROCHLORIDE
     Indication: Nasal septal operation
     Route: 065
     Dates: start: 20171127
  9. MORPHINE HYDROCHLORIDE [Suspect]
     Active Substance: MORPHINE HYDROCHLORIDE
     Indication: Nasal septal operation
     Route: 065
     Dates: start: 20171127

REACTIONS (1)
  - Rash [Recovered/Resolved]

NARRATIVE: CASE EVENT DATE: 20171127
